FAERS Safety Report 6571550-7 (Version None)
Quarter: 2010Q1

REPORT INFORMATION
  Report Type: 
  Country: None (occurrence: None)
  Receive Date: 20100205
  Receipt Date: 20100128
  Transmission Date: 20100710
  Serious: Yes (Hospitalization, Other)
  Sender: FDA-Public Use
  Company Number: DE-JNJFOC-20090600735

PATIENT
  Age: 72 Year
  Sex: Female
  Weight: 77 kg

DRUGS (10)
  1. FENTANYL [Suspect]
     Indication: PAIN
     Route: 062
     Dates: start: 20070101
  2. AMLODIPINE [Suspect]
     Indication: HYPERTENSION
     Route: 048
     Dates: start: 20080501
  3. DIOVAN HCT [Suspect]
     Indication: HYPERTENSION
     Route: 048
  4. MICTONORM [Suspect]
     Indication: MICTURITION URGENCY
     Route: 048
  5. GODAMED [Concomitant]
     Indication: CAROTID ARTERY STENOSIS
     Route: 048
  6. PANTOZOL [Concomitant]
     Indication: GASTRITIS PROPHYLAXIS
     Route: 048
  7. PRESOMEN [Concomitant]
     Indication: OSTEOPOROSIS
     Route: 048
  8. VIANI [Concomitant]
     Indication: ASTHMA
     Route: 065
  9. ALENDRONIC ACID [Concomitant]
     Indication: OSTEOPOROSIS
     Route: 048
     Dates: start: 20080901
  10. CALCIMAGON-D3 [Concomitant]
     Indication: OSTEOPOROSIS
     Route: 048

REACTIONS (3)
  - CONSTIPATION [None]
  - DIVERTICULUM INTESTINAL [None]
  - FAECALOMA [None]
